FAERS Safety Report 6499173-9 (Version None)
Quarter: 2009Q4

REPORT INFORMATION
  Report Type: 
  Country: None (occurrence: None)
  Receive Date: 20091215
  Receipt Date: 20091208
  Transmission Date: 20100525
  Serious: Yes (Hospitalization)
  Sender: FDA-Public Use
  Company Number: US-ELI_LILLY_AND_COMPANY-US200912002165

PATIENT
  Sex: Male

DRUGS (2)
  1. HUMALOG [Suspect]
     Indication: DIABETES MELLITUS
     Dosage: 33 U, OTHER
     Route: 058
     Dates: start: 19970101
  2. HUMALOG [Suspect]
     Dosage: 33 U, OTHER
     Route: 058
     Dates: start: 19970101

REACTIONS (4)
  - BLOOD GLUCOSE INCREASED [None]
  - CORONARY ARTERY BYPASS [None]
  - DRUG INEFFECTIVE [None]
  - MEDICATION ERROR [None]
